FAERS Safety Report 7070239-8 (Version None)
Quarter: 2010Q4

REPORT INFORMATION
  Report Type: 
  Country: None (occurrence: None)
  Receive Date: 20101028
  Receipt Date: 20100917
  Transmission Date: 20110411
  Serious: No
  Sender: FDA-Public Use
  Company Number: US-WYE-H17663710

PATIENT
  Age: 81 Year
  Sex: Male

DRUGS (1)
  1. CORDARONE [Suspect]
     Dosage: 400MG DAILY FOR 2 WEEKS, THEN 200MG DAILY FOR 2 WEEKS, AND CURRENTLY 100MG DAILY (DATES UNSPECIFIED)

REACTIONS (4)
  - COUGH [None]
  - DYSPNOEA [None]
  - FEELING ABNORMAL [None]
  - POOR QUALITY SLEEP [None]
